FAERS Safety Report 6082197-3 (Version None)
Quarter: 2009Q1

REPORT INFORMATION
  Report Type: 
  Country: None (occurrence: None)
  Receive Date: 20090218
  Receipt Date: 20090212
  Transmission Date: 20090719
  Serious: Yes (Hospitalization)
  Sender: FDA-Public Use
  Company Number: B0547276A

PATIENT
  Sex: Male
  Weight: 79.8 kg

DRUGS (1)
  1. DUTASTERIDE [Suspect]
     Indication: PROSTATE CANCER
     Route: 048
     Dates: start: 20041018

REACTIONS (1)
  - MALARIA [None]
